FAERS Safety Report 16666636 (Version 1)
Quarter: 2019Q3

REPORT INFORMATION
  Report Type: Spontaneous
  Country: EG (occurrence: EG)
  Receive Date: 20190805
  Receipt Date: 20190805
  Transmission Date: 20191004
  Serious: Yes (Life-Threatening)
  Sender: FDA-Public Use
  Company Number: EG-SA-2019SA200970

PATIENT
  Sex: Male

DRUGS (1)
  1. FEXOFENADINE [Suspect]
     Active Substance: FEXOFENADINE HYDROCHLORIDE
     Dosage: UNK
     Route: 065

REACTIONS (4)
  - Ill-defined disorder [Unknown]
  - Arrhythmia [Unknown]
  - Dyspnoea [Unknown]
  - Tachycardia [Unknown]
